FAERS Safety Report 5656027-5 (Version None)
Quarter: 2008Q1

REPORT INFORMATION
  Report Type: 
  Country: None (occurrence: None)
  Receive Date: 20080307
  Receipt Date: 20080225
  Transmission Date: 20080703
  Serious: Yes (Other)
  Sender: FDA-Public Use
  Company Number: CA-PFIZER INC-2008018917

PATIENT
  Age: 20 Year
  Sex: Female

DRUGS (2)
  1. LYRICA [Suspect]
     Route: 048
  2. OPIOIDS [Suspect]

REACTIONS (1)
  - CEREBROVASCULAR ACCIDENT [None]
